FAERS Safety Report 14843721 (Version 72)
Quarter: 2025Q1

REPORT INFORMATION
  Report Type: Spontaneous
  Country: IL (occurrence: IL)
  Receive Date: 20180503
  Receipt Date: 20250213
  Transmission Date: 20250408
  Serious: Yes (Other)
  Sender: PFIZER
  Company Number: IL-PFIZER INC-2018177834

PATIENT
  Age: 66 Year
  Sex: Male

DRUGS (29)
  1. ELELYSO [Suspect]
     Active Substance: TALIGLUCERASE ALFA
     Indication: Gaucher^s disease
     Route: 042
     Dates: start: 20170517, end: 20170517
  2. ELELYSO [Suspect]
     Active Substance: TALIGLUCERASE ALFA
     Route: 042
  3. ELELYSO [Suspect]
     Active Substance: TALIGLUCERASE ALFA
     Route: 042
  4. ELELYSO [Suspect]
     Active Substance: TALIGLUCERASE ALFA
     Route: 042
  5. ELELYSO [Suspect]
     Active Substance: TALIGLUCERASE ALFA
     Route: 042
  6. ELELYSO [Suspect]
     Active Substance: TALIGLUCERASE ALFA
     Route: 042
  7. ELELYSO [Suspect]
     Active Substance: TALIGLUCERASE ALFA
     Route: 042
  8. ELELYSO [Suspect]
     Active Substance: TALIGLUCERASE ALFA
     Route: 042
     Dates: start: 20210308
  9. ELELYSO [Suspect]
     Active Substance: TALIGLUCERASE ALFA
     Route: 042
  10. ELELYSO [Suspect]
     Active Substance: TALIGLUCERASE ALFA
     Route: 042
  11. ELELYSO [Suspect]
     Active Substance: TALIGLUCERASE ALFA
     Route: 042
  12. ELELYSO [Suspect]
     Active Substance: TALIGLUCERASE ALFA
     Route: 042
  13. ELELYSO [Suspect]
     Active Substance: TALIGLUCERASE ALFA
     Route: 042
     Dates: start: 20230716, end: 20230716
  14. ELELYSO [Suspect]
     Active Substance: TALIGLUCERASE ALFA
     Route: 042
     Dates: start: 20230807
  15. ELELYSO [Suspect]
     Active Substance: TALIGLUCERASE ALFA
     Route: 042
     Dates: start: 20230823
  16. ELELYSO [Suspect]
     Active Substance: TALIGLUCERASE ALFA
     Route: 042
  17. ELELYSO [Suspect]
     Active Substance: TALIGLUCERASE ALFA
     Route: 042
  18. ELELYSO [Suspect]
     Active Substance: TALIGLUCERASE ALFA
     Route: 042
     Dates: start: 20240219
  19. ELELYSO [Suspect]
     Active Substance: TALIGLUCERASE ALFA
     Route: 042
     Dates: start: 20240502
  20. ELELYSO [Suspect]
     Active Substance: TALIGLUCERASE ALFA
     Route: 042
     Dates: start: 20240516
  21. ELELYSO [Suspect]
     Active Substance: TALIGLUCERASE ALFA
     Route: 042
     Dates: start: 20240603
  22. ELELYSO [Suspect]
     Active Substance: TALIGLUCERASE ALFA
     Route: 042
     Dates: start: 20240617
  23. ELELYSO [Suspect]
     Active Substance: TALIGLUCERASE ALFA
     Route: 042
     Dates: start: 20240711
  24. ELELYSO [Suspect]
     Active Substance: TALIGLUCERASE ALFA
     Route: 042
     Dates: start: 20240729
  25. ELELYSO [Suspect]
     Active Substance: TALIGLUCERASE ALFA
     Route: 042
     Dates: start: 20241006, end: 20241006
  26. ELELYSO [Suspect]
     Active Substance: TALIGLUCERASE ALFA
     Route: 042
     Dates: start: 20241215
  27. ELELYSO [Suspect]
     Active Substance: TALIGLUCERASE ALFA
     Route: 042
     Dates: start: 20250105
  28. ELELYSO [Suspect]
     Active Substance: TALIGLUCERASE ALFA
     Route: 042
     Dates: start: 20250119
  29. ELELYSO [Suspect]
     Active Substance: TALIGLUCERASE ALFA
     Route: 042

REACTIONS (15)
  - Cataract [Unknown]
  - Oesophageal carcinoma [Unknown]
  - Procedural haemorrhage [Unknown]
  - Atrial fibrillation [Unknown]
  - Nasopharyngitis [Unknown]
  - Haemoglobin decreased [Unknown]
  - Pain [Unknown]
  - Asthenia [Unknown]
  - Poor venous access [Unknown]
  - Oedema [Recovering/Resolving]
  - COVID-19 [Recovered/Resolved]
  - Infusion site swelling [Unknown]
  - Underdose [Unknown]
  - Inappropriate schedule of product administration [Recovered/Resolved]
  - Drug monitoring procedure not performed [Unknown]
